FAERS Safety Report 6044079-2 (Version None)
Quarter: 2009Q1

REPORT INFORMATION
  Report Type: 
  Country: None (occurrence: None)
  Receive Date: 20090120
  Receipt Date: 20090116
  Transmission Date: 20090719
  Serious: Yes (Hospitalization)
  Sender: FDA-Public Use
  Company Number: A0764147A

PATIENT
  Age: 57 Year
  Sex: Male
  Weight: 98 kg

DRUGS (3)
  1. AVANDIA [Suspect]
     Dosage: 4MG PER DAY
     Route: 065
     Dates: start: 20080214, end: 20090104
  2. GLIFAGE [Concomitant]
     Dates: start: 20081206
  3. GLUCOVANCE [Concomitant]
     Dates: start: 20070101, end: 20081201

REACTIONS (1)
  - HEPATIC STEATOSIS [None]
